FAERS Safety Report 21663173 (Version 1)
Quarter: 2022Q4

REPORT INFORMATION
  Report Type: Spontaneous
  Country: JP (occurrence: None)
  Receive Date: 20221130
  Receipt Date: 20221130
  Transmission Date: 20230113
  Serious: Yes (Other)
  Sender: FDA-Public Use
  Company Number: JP-MDD US Operations-SLP201908-001417

PATIENT
  Age: 13 Year
  Sex: Female

DRUGS (1)
  1. NEUROBLOC [Suspect]
     Active Substance: RIMABOTULINUMTOXINB
     Indication: Cachexia

REACTIONS (3)
  - Superior mesenteric artery syndrome [Unknown]
  - Weight decreased [Recovered/Resolved]
  - Product use in unapproved indication [Unknown]
